FAERS Safety Report 9502090 (Version 1)
Quarter: 2013Q3

REPORT INFORMATION
  Report Type: Spontaneous
  Country: US (occurrence: US)
  Receive Date: 20130905
  Receipt Date: 20130905
  Transmission Date: 20140515
  Serious: Yes (Other)
  Sender: FDA-Public Use
  Company Number: US-RB-057962-13

PATIENT
  Age: 34 Year
  Sex: Male

DRUGS (4)
  1. SUBOXONE FILM [Suspect]
     Dosage: SUBOXONE FILM
     Route: 060
     Dates: start: 2011
  2. SUBOXONE FILM [Suspect]
     Indication: DRUG DEPENDENCE
     Dosage: SUBOXONE FILM; TAPERED DOSES
     Route: 060
     Dates: end: 201308
  3. SUBOXONE FILM [Suspect]
     Dosage: SUBOXONE FILM; VARIOUS SIZES AND DOSES
     Route: 060
     Dates: start: 201308, end: 201308
  4. CLONAZEPAM [Suspect]
     Indication: ANXIETY
     Dosage: TOOK FOR MORE THAN 10 YEARS
     Route: 048
     Dates: end: 201308

REACTIONS (5)
  - Wrong technique in drug usage process [Recovered/Resolved]
  - Drug withdrawal syndrome [Not Recovered/Not Resolved]
  - Vomiting [Not Recovered/Not Resolved]
  - Convulsion [Recovered/Resolved]
  - Substance abuse [Recovered/Resolved]
